FAERS Safety Report 6308184-5 (Version None)
Quarter: 2009Q3

REPORT INFORMATION
  Report Type: 
  Country: None (occurrence: None)
  Receive Date: 20090813
  Receipt Date: 20090804
  Transmission Date: 20100115
  Serious: Yes (Death)
  Sender: FDA-Public Use
  Company Number: IT-PFIZER INC-2009250012

PATIENT
  Age: 75 Year

DRUGS (14)
  1. DIFLUCAN [Suspect]
     Dosage: 100 MG PER DAY
     Dates: start: 20090624, end: 20090724
  2. TAZOCIN [Suspect]
     Indication: SEPSIS
     Dosage: UNK,3 UNIT DOSE
     Route: 042
     Dates: start: 20090627, end: 20090727
  3. DAPTOMYCIN [Suspect]
     Dosage: 420 MG PER DAY
     Dates: start: 20090623, end: 20090723
  4. SPIRONOLACTONE [Concomitant]
     Dosage: 100 MG, UNK
     Route: 048
  5. ENOXAPARIN SODIUM [Concomitant]
     Dosage: 0.6 ML, 2 UNIT DOSE
  6. FLECAINIDE ACETATE [Concomitant]
  7. CATAPRESSAN TTS [Concomitant]
  8. ANTRA [Concomitant]
  9. BACILLUS SUBTILIS [Concomitant]
  10. POTASSIUM CANRENOATE [Concomitant]
  11. FERROGRAD C [Concomitant]
  12. FUROSEMIDE [Concomitant]
  13. CALCIUM SANDOZ C [Concomitant]
  14. NUTRITIONAL SUPPLEMENT [Concomitant]

REACTIONS (2)
  - GASTROENTERITIS CLOSTRIDIAL [None]
  - MEGACOLON [None]
